FAERS Safety Report 6140400-5 (Version None)
Quarter: 2009Q2

REPORT INFORMATION
  Report Type: 
  Country: None (occurrence: None)
  Receive Date: 20090401
  Receipt Date: 20090326
  Transmission Date: 20091009
  Serious: Yes (Life-Threatening, Hospitalization)
  Sender: FDA-Public Use
  Company Number: CN-MERCK-0903USA04904

PATIENT
  Age: 20 Year
  Sex: Female

DRUGS (4)
  1. DECADRON [Suspect]
     Indication: MOUNTAIN SICKNESS ACUTE
     Route: 048
  2. FUROSEMIDE [Concomitant]
     Route: 065
  3. ASPIRIN [Concomitant]
     Indication: ANALGESIA
     Route: 065
  4. OXYGEN [Concomitant]

REACTIONS (2)
  - DRUG INEFFECTIVE [None]
  - MOUNTAIN SICKNESS ACUTE [None]
